FAERS Safety Report 5119597-1 (Version None)
Quarter: 2006Q3

REPORT INFORMATION
  Report Type: 
  Country: None (occurrence: None)
  Receive Date: 20060929
  Receipt Date: 20060921
  Transmission Date: 20061208
  Serious: Yes (Hospitalization, Disabling, Other)
  Sender: FDA-Public Use
  Company Number: 2006114509

PATIENT
  Age: 45 Year
  Sex: Female

DRUGS (2)
  1. MISOPROSTOL [Suspect]
     Indication: ABORTION
     Dates: start: 20060101
  2. MISOPROSTOL [Suspect]
     Indication: OBSTETRICAL PROCEDURE
     Dates: start: 20060101

REACTIONS (7)
  - ANAPHYLACTIC REACTION [None]
  - BRAIN DEATH [None]
  - CARDIAC ARREST [None]
  - DRUG EXPOSURE DURING PREGNANCY [None]
  - LOSS OF CONSCIOUSNESS [None]
  - NAUSEA [None]
  - VOMITING [None]
